FAERS Safety Report 24341796 (Version 1)
Quarter: 2024Q3

REPORT INFORMATION
  Report Type: Spontaneous
  Country: CN (occurrence: CN)
  Receive Date: 20240920
  Receipt Date: 20240920
  Transmission Date: 20241017
  Serious: Yes (Hospitalization, Other)
  Sender: CHEPLAPHARM
  Company Number: CN-ROCHE-3185505

PATIENT
  Age: 53 Year
  Sex: Female
  Weight: 59 kg

DRUGS (22)
  1. CAPECITABINE [Suspect]
     Active Substance: CAPECITABINE
     Indication: Metastatic gastric cancer
     Dosage: ON DAYS 1-14 OF EACH 21 DAY CYCLE. LAST DOSE OF STUDY DRUG ADMINISTERED PRIOR AE WAS 3000 MG. START
     Route: 048
     Dates: start: 20220818
  2. CAPECITABINE [Suspect]
     Active Substance: CAPECITABINE
     Indication: Metastatic gastric cancer
     Dosage: LAST DOSE 3000 MG
     Route: 048
     Dates: end: 20220831
  3. ATEZOLIZUMAB [Suspect]
     Active Substance: ATEZOLIZUMAB
     Indication: Metastatic gastric cancer
     Dosage: LAST STUDY DRUG ADMINISTERED PRIOR AE WAS 1200 MG. START DATE OF MOST RECENT DOSE OF STUDY DRUG P...
     Route: 042
     Dates: start: 20220818
  4. TIRAGOLUMAB [Suspect]
     Active Substance: TIRAGOLUMAB
     Indication: Metastatic gastric cancer
     Dosage: LAST DOSE OF STUDY DRUG ADMINISTERED PRIOR AE WAS 600 MG. START DATE OF MOST RECENT DOSE OF STUDY DR
     Route: 042
     Dates: start: 20220818
  5. OXALIPLATIN [Suspect]
     Active Substance: OXALIPLATIN
     Indication: Metastatic gastric cancer
     Dosage: LAST DOSE OF STUDY DRUG ADMINISTERED PRIOR AE WAS 205 MG. START DATE OF MOST RECENT DOSE OF STUDY DR
     Route: 042
     Dates: start: 20220818
  6. PACLITAXEL [Concomitant]
     Active Substance: PACLITAXEL
     Indication: Neoplasm malignant
     Dates: start: 20220924, end: 20220924
  7. FUROSEMIDE [Concomitant]
     Active Substance: FUROSEMIDE
     Indication: Hypoalbuminaemia
     Route: 042
     Dates: start: 20220917, end: 20220918
  8. MOSAPRIDE CITRATE [Concomitant]
     Active Substance: MOSAPRIDE CITRATE
     Dosage: 5 MG 3 TIMES A DAY
     Route: 048
     Dates: start: 20220907, end: 20220923
  9. COMPOUND AMINO ACID INJECTION (18AA-I) [Concomitant]
     Route: 042
     Dates: start: 20220908, end: 20220913
  10. DIPHENHYDRAMINE HYDROCHLORIDE [Concomitant]
     Active Substance: DIPHENHYDRAMINE HYDROCHLORIDE
     Indication: Prophylaxis of nausea and vomiting
     Route: 030
     Dates: start: 20220818, end: 20220819
  11. DIPHENHYDRAMINE HYDROCHLORIDE [Concomitant]
     Active Substance: DIPHENHYDRAMINE HYDROCHLORIDE
     Indication: Prophylaxis of nausea and vomiting
     Route: 030
     Dates: start: 20220818, end: 20220819
  12. DIPHENHYDRAMINE HYDROCHLORIDE [Concomitant]
     Active Substance: DIPHENHYDRAMINE HYDROCHLORIDE
     Indication: Prophylaxis of nausea and vomiting
     Route: 030
     Dates: start: 20220913, end: 20220923
  13. DIPHENHYDRAMINE HYDROCHLORIDE [Concomitant]
     Active Substance: DIPHENHYDRAMINE HYDROCHLORIDE
     Indication: Prophylaxis of nausea and vomiting
     Route: 030
     Dates: start: 20220913, end: 20220923
  14. ALBUMIN HUMAN [Concomitant]
     Active Substance: ALBUMIN HUMAN
     Indication: Hypoalbuminaemia
     Route: 042
     Dates: start: 20220913, end: 20220915
  15. ALBUMIN HUMAN [Concomitant]
     Active Substance: ALBUMIN HUMAN
     Indication: Hypoalbuminaemia
     Route: 042
     Dates: start: 20220915, end: 20220920
  16. ALBUMIN HUMAN [Concomitant]
     Active Substance: ALBUMIN HUMAN
     Indication: Hypoalbuminaemia
     Route: 042
     Dates: start: 20220920, end: 20220923
  17. MAGNESIUM ISOGLYCYRRHIZINATE [Concomitant]
     Active Substance: MAGNESIUM ISOGLYCYRRHIZINATE
     Route: 042
     Dates: start: 20220923, end: 20220923
  18. TIOPRONIN [Concomitant]
     Active Substance: TIOPRONIN
     Route: 042
     Dates: start: 20220923, end: 20220923
  19. METOCLOPRAMIDE DIHYDROCHLORIDE [Concomitant]
     Active Substance: METOCLOPRAMIDE DIHYDROCHLORIDE
     Indication: Prophylaxis of nausea and vomiting
     Route: 030
     Dates: start: 20220818, end: 20220818
  20. METOCLOPRAMIDE DIHYDROCHLORIDE [Concomitant]
     Active Substance: METOCLOPRAMIDE DIHYDROCHLORIDE
     Indication: Prophylaxis of nausea and vomiting
     Route: 030
     Dates: start: 20220818, end: 20220818
  21. TROPISETRON HYDROCHLORIDE [Concomitant]
     Active Substance: TROPISETRON HYDROCHLORIDE
     Indication: Prophylaxis of nausea and vomiting
     Route: 042
     Dates: start: 20220818, end: 20220818
  22. TROPISETRON HYDROCHLORIDE [Concomitant]
     Active Substance: TROPISETRON HYDROCHLORIDE
     Indication: Prophylaxis of nausea and vomiting
     Route: 042
     Dates: start: 20220818, end: 20220818

REACTIONS (4)
  - Gastrointestinal obstruction [Not Recovered/Not Resolved]
  - Gastrointestinal obstruction [Not Recovered/Not Resolved]
  - Ascites [Unknown]
  - Atelectasis [Unknown]

NARRATIVE: CASE EVENT DATE: 20220905
